FAERS Safety Report 5563345-8 (Version None)
Quarter: 2007Q4

REPORT INFORMATION
  Report Type: 
  Country: None (occurrence: None)
  Receive Date: 20071212
  Receipt Date: 20071128
  Transmission Date: 20080405
  Serious: Yes (Hospitalization)
  Sender: FDA-Public Use
  Company Number: DSA_30949_2007

PATIENT
  Sex: Female
  Weight: 90.7194 kg

DRUGS (2)
  1. ATIVAN [Suspect]
     Indication: DRUG USE FOR UNKNOWN INDICATION
     Dosage: DF ORAL
     Route: 048
  2. GEODON [Concomitant]

REACTIONS (2)
  - CARDIAC ARREST [None]
  - MENTAL DISORDER [None]
